FAERS Safety Report 24979736 (Version 1)
Quarter: 2025Q1

REPORT INFORMATION
  Report Type: Spontaneous
  Country: IN (occurrence: IN)
  Receive Date: 20250218
  Receipt Date: 20250218
  Transmission Date: 20250408
  Serious: Yes (Hospitalization, Other)
  Sender: RANBAXY
  Company Number: IN-SUN PHARMACEUTICAL INDUSTRIES LTD-2025R1-494073

PATIENT
  Age: 5 Decade
  Sex: Male

DRUGS (2)
  1. SODIUM CHLORIDE [Suspect]
     Active Substance: SODIUM CHLORIDE
     Indication: Oedema
     Dosage: 100 MILLILITER, QID
     Route: 042
  2. MANNITOL [Suspect]
     Active Substance: MANNITOL
     Indication: Oedema
     Dosage: 1 G/KG, TID
     Route: 042

REACTIONS (1)
  - Condition aggravated [Unknown]
